FAERS Safety Report 5149585-0 (Version None)
Quarter: 2006Q4

REPORT INFORMATION
  Report Type: 
  Country: None (occurrence: None)
  Receive Date: 20061113
  Receipt Date: 20060510
  Transmission Date: 20070319
  Serious: No
  Sender: FDA-Public Use
  Company Number: US-GLAXOSMITHKLINE-A0606239A

PATIENT
  Sex: Male

DRUGS (3)
  1. COREG [Suspect]
     Indication: DRUG USE FOR UNKNOWN INDICATION
     Route: 065
  2. ACE INHIBITOR [Concomitant]
  3. SPIRONOLACTONE [Concomitant]

REACTIONS (1)
  - DRUG INEFFECTIVE [None]
